FAERS Safety Report 9621822 (Version 2)
Quarter: 2013Q4

REPORT INFORMATION
  Report Type: Spontaneous
  Country: US (occurrence: US)
  Receive Date: 20131015
  Receipt Date: 20131015
  Transmission Date: 20140711
  Serious: No
  Sender: FDA-Public Use
  Company Number: US-PURDUE-USA-2012-0085154

PATIENT
  Age: 63 Year
  Sex: Male
  Weight: 92.97 kg

DRUGS (1)
  1. BUTRANS [Suspect]
     Indication: PAIN
     Dosage: 5 MCG/HR, UNK
     Route: 062

REACTIONS (7)
  - Application site rash [Recovering/Resolving]
  - Application site pain [Unknown]
  - Application site exfoliation [Unknown]
  - Application site pruritus [Unknown]
  - Pruritus generalised [Unknown]
  - Drug ineffective [Unknown]
  - Inadequate analgesia [Unknown]
